FAERS Safety Report 5326801-3 (Version None)
Quarter: 2007Q2

REPORT INFORMATION
  Report Type: 
  Country: None (occurrence: None)
  Receive Date: 20070516
  Receipt Date: 20070427
  Transmission Date: 20071010
  Serious: Yes (Other)
  Sender: FDA-Public Use
  Company Number: US-GENENTECH-241500

PATIENT
  Age: 9 Year
  Sex: Male

DRUGS (1)
  1. NUTROPIN [Suspect]
     Indication: SILVER-RUSSELL SYNDROME

REACTIONS (1)
  - SPINAL CORD DISORDER [None]
